FAERS Safety Report 9543462 (Version 2)
Quarter: 2013Q3

REPORT INFORMATION
  Report Type: Report from Study
  Country: US (occurrence: US)
  Receive Date: 20130923
  Receipt Date: 20130923
  Transmission Date: 20140515
  Serious: Yes (Death, Hospitalization, Other)
  Sender: FDA-Public Use
  Company Number: US-009507513-0905USA03988

PATIENT
  Age: 50 Year
  Sex: Male
  Weight: 63.4 kg

DRUGS (11)
  1. VORINOSTAT [Suspect]
     Indication: BREAST CANCER
     Dosage: 200 MG, BID
     Route: 048
     Dates: start: 20090423, end: 20090523
  2. VORINOSTAT [Suspect]
     Dosage: 200 MG, BID
     Route: 048
     Dates: start: 20090504, end: 20090511
  3. VORINOSTAT [Suspect]
     Dosage: 200 MG, AM
     Route: 048
     Dates: start: 20090518, end: 20090518
  4. CAPECITABINE [Suspect]
     Indication: BREAST CANCER
     Dosage: 1800 MG, BID
     Route: 048
     Dates: start: 20090504, end: 20090511
  5. CAPECITABINE [Suspect]
     Dosage: 1800 MG, BID
     Route: 048
     Dates: start: 20090430, end: 20090430
  6. CAPECITABINE [Suspect]
     Dosage: 1800 MG, QAM
     Route: 048
     Dates: start: 20090518, end: 20090518
  7. KEPPRA [Concomitant]
     Indication: CONVULSION
     Dosage: 1000 MG, BID
     Dates: start: 20090404
  8. ASPIRIN [Concomitant]
     Indication: ANTICOAGULANT THERAPY
     Dosage: 81 MG, QD
     Route: 048
     Dates: start: 20090404
  9. ZOMETA [Concomitant]
     Route: 042
  10. ZOFRAN [Concomitant]
     Indication: NAUSEA
     Dosage: 8 MG, BID
     Dates: start: 20090511
  11. K-DUR [Concomitant]
     Indication: HYPOKALAEMIA
     Dosage: 20 MG, TID
     Route: 048
     Dates: start: 20090521

REACTIONS (1)
  - Intestinal perforation [Fatal]
